FAERS Safety Report 7019060-7 (Version None)
Quarter: 2010Q3

REPORT INFORMATION
  Report Type: 
  Country: None (occurrence: None)
  Receive Date: 20100928
  Receipt Date: 20100921
  Transmission Date: 20110219
  Serious: Yes (Other)
  Sender: FDA-Public Use
  Company Number: A0878168A

PATIENT
  Age: 62 Year
  Sex: Female

DRUGS (3)
  1. VOTRIENT [Suspect]
     Indication: PRODUCT USED FOR UNKNOWN INDICATION
     Dosage: 800MG PER DAY
     Route: 048
     Dates: start: 20100816, end: 20100826
  2. NEXAVAR [Suspect]
     Indication: PRODUCT USED FOR UNKNOWN INDICATION
  3. CHEMOTHERAPY [Suspect]
     Indication: PRODUCT USED FOR UNKNOWN INDICATION
     Route: 042

REACTIONS (7)
  - ABDOMINAL PAIN UPPER [None]
  - CATARACT [None]
  - DECREASED APPETITE [None]
  - DIARRHOEA [None]
  - HYPERTENSION [None]
  - VISION BLURRED [None]
  - VISUAL IMPAIRMENT [None]
